FAERS Safety Report 7374649-0 (Version None)
Quarter: 2011Q1

REPORT INFORMATION
  Report Type: 
  Country: None (occurrence: None)
  Receive Date: 20110325
  Receipt Date: 20100614
  Transmission Date: 20110831
  Serious: No
  Sender: FDA-Public Use
  Company Number: US-MYLANLABS-2010S1010558

PATIENT
  Age: 39 Year
  Sex: Female

DRUGS (7)
  1. FENTANYL-100 [Suspect]
     Dosage: CHANGED Q2D
     Route: 062
     Dates: start: 20060101
  2. OXYCODONE [Concomitant]
     Indication: BREAKTHROUGH PAIN
  3. XANAX [Concomitant]
     Indication: ANXIETY
  4. FENTANYL-100 [Suspect]
     Indication: PAIN
     Dosage: CHANGES PATCHES Q2D
     Route: 062
     Dates: start: 20060101
  5. PREMARIN [Concomitant]
     Indication: HORMONE REPLACEMENT THERAPY
  6. TRICOR [Concomitant]
     Indication: BLOOD CHOLESTEROL INCREASED
  7. LEVOTHYROXINE SODIUM [Concomitant]
     Indication: HYPOTHYROIDISM

REACTIONS (3)
  - APPLICATION SITE ERYTHEMA [None]
  - APPLICATION SITE PAIN [None]
  - APPLICATION SITE SCAB [None]
